FAERS Safety Report 5036816-0 (Version None)
Quarter: 2006Q2

REPORT INFORMATION
  Report Type: 
  Country: None (occurrence: None)
  Receive Date: 20060612
  Receipt Date: 20060106
  Transmission Date: 20061013
  Serious: Yes (Hospitalization)
  Sender: FDA-Public Use
  Company Number: WAES 0601USA00736

PATIENT
  Age: 65 Year
  Sex: Female

DRUGS (1)
  1. COSOPT [Suspect]
     Indication: OPEN ANGLE GLAUCOMA
     Dosage: 1 DROPS/BID/OPHT
     Route: 047

REACTIONS (1)
  - SINUS BRADYCARDIA [None]
